FAERS Safety Report 5440722-7 (Version None)
Quarter: 2007Q3

REPORT INFORMATION
  Report Type: 
  Country: None (occurrence: None)
  Receive Date: 20070731
  Receipt Date: 20070604
  Transmission Date: 20080115
  Serious: No
  Sender: FDA-Public Use
  Company Number: US200705003814

PATIENT
  Age: 59 Year
  Sex: Male

DRUGS (7)
  1. BYETTA [Suspect]
     Indication: TYPE 2 DIABETES MELLITUS
     Dosage: 5 UG, 2/D, SUBCUTANEOUS; 5 UG, 3/D, SUBCUTANEOUS; 10 UG, 3/D, SUBCUTANEOUS
     Route: 058
     Dates: start: 20060601, end: 20060601
  2. BYETTA [Suspect]
     Indication: TYPE 2 DIABETES MELLITUS
     Dosage: 5 UG, 2/D, SUBCUTANEOUS; 5 UG, 3/D, SUBCUTANEOUS; 10 UG, 3/D, SUBCUTANEOUS
     Route: 058
     Dates: start: 20060601, end: 20060701
  3. BYETTA [Suspect]
     Indication: TYPE 2 DIABETES MELLITUS
     Dosage: 5 UG, 2/D, SUBCUTANEOUS; 5 UG, 3/D, SUBCUTANEOUS; 10 UG, 3/D, SUBCUTANEOUS
     Route: 058
     Dates: start: 20060701, end: 20060801
  4. BYETTA [Suspect]
     Indication: TYPE 2 DIABETES MELLITUS
     Dosage: 5 UG, 2/D, SUBCUTANEOUS; 5 UG, 3/D, SUBCUTANEOUS; 10 UG, 3/D, SUBCUTANEOUS
     Route: 058
     Dates: start: 20060701
  5. BYETTA [Suspect]
     Indication: TYPE 2 DIABETES MELLITUS
     Dosage: 5 UG, 2/D, SUBCUTANEOUS; 5 UG, 3/D, SUBCUTANEOUS; 10 UG, 3/D, SUBCUTANEOUS
     Route: 058
     Dates: start: 20060801
  6. EXENATIDE PEN (EXENATIDE PEN) [Concomitant]
  7. PLAVIX [Concomitant]

REACTIONS (2)
  - INJECTION SITE HAEMORRHAGE [None]
  - OVERDOSE [None]
